FAERS Safety Report 9734334 (Version 4)
Quarter: 2014Q4

REPORT INFORMATION
  Report Type: Spontaneous
  Country: JP (occurrence: JP)
  Receive Date: 20131206
  Receipt Date: 20141202
  Transmission Date: 20150529
  Serious: Yes (Other)
  Sender: FDA-Public Use
  Company Number: JP-009507513-1312JPN000142

PATIENT

DRUGS (5)
  1. FP (SELEGILINE HYDROCHLORIDE) [Concomitant]
     Dosage: DAILY DOSAGE UNKNOWN, FORMULATION: POR
     Route: 048
  2. DOPS [Concomitant]
     Active Substance: DROXIDOPA
     Indication: PARKINSON^S DISEASE
     Dosage: DAILY DOSAGE UNKNOWN, FORMULATION: POR
     Route: 048
  3. MENESIT TABLETS - 100 [Suspect]
     Active Substance: CARBIDOPA\LEVODOPA
     Dosage: 100MG IN THE MORING AND 100MG IN THE EVENING
     Route: 048
  4. MENESIT TABLETS - 100 [Suspect]
     Active Substance: CARBIDOPA\LEVODOPA
     Dosage: DOSAGE WAS INCREASED TO 400 MG DAILY SOMETIMES
     Route: 048
     Dates: start: 201011
  5. MENESIT TABLETS - 100 [Suspect]
     Active Substance: CARBIDOPA\LEVODOPA
     Indication: PARKINSON^S DISEASE
     Dosage: 100MG IN THE MORING AND 100MG IN THE EVENING
     Route: 048
     Dates: start: 20141010, end: 20141019

REACTIONS (6)
  - Constipation [Unknown]
  - Diarrhoea [Unknown]
  - Drug ineffective [Unknown]
  - Hydrocephalus [Recovered/Resolved]
  - Surgery [Recovered/Resolved]
  - Abdominal discomfort [Unknown]

NARRATIVE: CASE EVENT DATE: 201410
